FAERS Safety Report 26137119 (Version 1)
Quarter: 2025Q4

REPORT INFORMATION
  Report Type: Spontaneous
  Country: EU (occurrence: EU)
  Receive Date: 20251209
  Receipt Date: 20251209
  Transmission Date: 20260118
  Serious: Yes (Hospitalization)
  Sender: MERCK SHARP & DOHME LLC
  Company Number: EU-ASTRAZENECA-202511EEA026413AT

PATIENT
  Age: 33 Year
  Sex: Female

DRUGS (2)
  1. KEYTRUDA [Suspect]
     Active Substance: PEMBROLIZUMAB
     Route: 065
  2. LYNPARZA [Suspect]
     Active Substance: OLAPARIB
     Indication: Breast cancer
     Dosage: UNK
     Route: 065

REACTIONS (9)
  - Pneumonia [Unknown]
  - Sepsis [Unknown]
  - C-reactive protein increased [Unknown]
  - Arthralgia [Unknown]
  - Fatigue [Unknown]
  - Pneumonitis [Unknown]
  - Pyrexia [Unknown]
  - Cough [Unknown]
  - Lymphopenia [Unknown]

NARRATIVE: CASE EVENT DATE: 20251016
